FAERS Safety Report 24822195 (Version 1)
Quarter: 2025Q1

REPORT INFORMATION
  Report Type: Spontaneous
  Country: US (occurrence: US)
  Receive Date: 20250108
  Receipt Date: 20250108
  Transmission Date: 20250409
  Serious: Yes (Death)
  Sender: ROCHE
  Company Number: US-ROCHE-10000174743

PATIENT
  Age: 81 Year
  Sex: Female

DRUGS (5)
  1. ACTEMRA [Suspect]
     Active Substance: TOCILIZUMAB
     Indication: Rheumatoid arthritis
     Route: 058
     Dates: start: 202411
  2. ACTEMRA [Suspect]
     Active Substance: TOCILIZUMAB
  3. HUMIRA [Concomitant]
     Active Substance: ADALIMUMAB
  4. KEVZARA [Concomitant]
     Active Substance: SARILUMAB
  5. CIMZIA [Concomitant]
     Active Substance: CERTOLIZUMAB PEGOL

REACTIONS (1)
  - Death [Fatal]

NARRATIVE: CASE EVENT DATE: 20250102
